FAERS Safety Report 16430936 (Version 1)
Quarter: 2019Q2

REPORT INFORMATION
  Report Type: Spontaneous
  Country: US (occurrence: US)
  Receive Date: 20190507
  Receipt Date: 20190507
  Transmission Date: 20190711
  Serious: Yes (Hospitalization)
  Sender: FDA-Public Use
  Company Number: None

PATIENT
  Age: 60 Year
  Sex: Male

DRUGS (3)
  1. LUPRON [Concomitant]
     Active Substance: LEUPROLIDE ACETATE
  2. ABIRATERONE 250MG [Suspect]
     Active Substance: ABIRATERONE
     Indication: PROSTATE CANCER
     Route: 048
     Dates: start: 20190412
  3. ALBUTER NEB [Concomitant]

REACTIONS (3)
  - Pneumonia [None]
  - Product dose omission [None]
  - Fatigue [None]

NARRATIVE: CASE EVENT DATE: 2019
